FAERS Safety Report 15537782 (Version 7)
Quarter: 2021Q3

REPORT INFORMATION
  Report Type: Other
  Country: CA (occurrence: CA)
  Receive Date: 20181022
  Receipt Date: 20210914
  Transmission Date: 20211014
  Serious: Yes (Congenital Anomaly, Other)
  Sender: FDA-Public Use
  Company Number: CA-GLENMARK PHARMACEUTICALS-2018GMK037855

PATIENT

DRUGS (134)
  1. DULOXETINE TEVA [Suspect]
     Active Substance: DULOXETINE HYDROCHLORIDE
     Dosage: UNK
     Route: 063
  2. URSODEOXYCHOLIC ACID [Suspect]
     Active Substance: URSODIOL
     Indication: PRODUCT USED FOR UNKNOWN INDICATION
     Dosage: UNK
     Route: 064
  3. DOCUSATE SODIUM. [Suspect]
     Active Substance: DOCUSATE SODIUM
     Dosage: UNK
     Route: 065
  4. DOCUSATE SODIUM. [Suspect]
     Active Substance: DOCUSATE SODIUM
     Dosage: UNK
     Route: 065
  5. DOMPERIDONE [Suspect]
     Active Substance: DOMPERIDONE
     Dosage: UNK
     Route: 065
  6. FERROUS SULFATE. [Suspect]
     Active Substance: FERROUS SULFATE
     Dosage: UNK
     Route: 065
  7. FERROUS SULFATE. [Suspect]
     Active Substance: FERROUS SULFATE
     Dosage: UNK
     Route: 064
  8. LEVOTHYROXINE. [Suspect]
     Active Substance: LEVOTHYROXINE
     Indication: PRODUCT USED FOR UNKNOWN INDICATION
     Dosage: UNK
     Route: 064
  9. LEVOTHYROXINE. [Suspect]
     Active Substance: LEVOTHYROXINE
     Dosage: UNK
     Route: 065
  10. METHYLPHENIDATE. [Suspect]
     Active Substance: METHYLPHENIDATE
     Dosage: UNK
     Route: 065
  11. METHYLPHENIDATE. [Suspect]
     Active Substance: METHYLPHENIDATE
     Dosage: 36 MILLIGRAM
     Route: 064
  12. OMEPRAZOLE. [Suspect]
     Active Substance: OMEPRAZOLE
     Dosage: UNK
     Route: 065
  13. DOMPERIDONE MALEATE [Suspect]
     Active Substance: DOMPERIDONE MALEATE
     Indication: PRODUCT USED FOR UNKNOWN INDICATION
     Dosage: UNK
     Route: 064
  14. DULOXETINE. [Suspect]
     Active Substance: DULOXETINE
     Dosage: UNK
     Route: 064
  15. INSULIN [Suspect]
     Active Substance: INSULIN NOS
     Dosage: UNK
     Route: 064
  16. CYCLOBENZAPRINE. [Suspect]
     Active Substance: CYCLOBENZAPRINE
     Dosage: UNK
     Route: 065
  17. DOCUSATE SODIUM. [Suspect]
     Active Substance: DOCUSATE SODIUM
     Indication: PRODUCT USED FOR UNKNOWN INDICATION
     Dosage: UNK
     Route: 064
  18. IRON SULPHATE [Suspect]
     Active Substance: FERROUS SULFATE ANHYDROUS
     Dosage: UNK
     Route: 064
  19. DULOXETINE TEVA [Suspect]
     Active Substance: DULOXETINE HYDROCHLORIDE
     Dosage: 90 MILLIGRAM
     Route: 063
  20. DULOXETINE TEVA [Suspect]
     Active Substance: DULOXETINE HYDROCHLORIDE
     Dosage: 90 MILLIGRAM
     Route: 063
  21. DULOXETINE TEVA [Suspect]
     Active Substance: DULOXETINE HYDROCHLORIDE
     Dosage: 90 MILLIGRAM, OD
     Route: 064
  22. DULOXETINE TEVA [Suspect]
     Active Substance: DULOXETINE HYDROCHLORIDE
     Dosage: 90 MILLIGRAM, OD (DELAYED RELEASE)
     Route: 064
  23. DOCUSATE [Suspect]
     Active Substance: DOCUSATE
     Dosage: UNK
     Route: 063
  24. DULOXETINE TEVA [Suspect]
     Active Substance: DULOXETINE HYDROCHLORIDE
     Dosage: 90 MILLIGRAM
     Route: 063
  25. CYCLOBENZAPRINE. [Suspect]
     Active Substance: CYCLOBENZAPRINE
     Dosage: UNK
     Route: 064
  26. CYCLOBENZAPRINE. [Suspect]
     Active Substance: CYCLOBENZAPRINE
     Dosage: UNK
     Route: 064
  27. DOMPERIDONE [Suspect]
     Active Substance: DOMPERIDONE
     Dosage: 20 MILLIGRAM
     Route: 064
  28. DULOXETINE HYDROCHLORIDE. [Suspect]
     Active Substance: DULOXETINE HYDROCHLORIDE
     Indication: PRODUCT USED FOR UNKNOWN INDICATION
     Dosage: 90 MG, OD (1 EVERY 1 DAY)
     Route: 064
  29. METHYLPHENIDATE. [Suspect]
     Active Substance: METHYLPHENIDATE
     Dosage: 36 MILLIGRAM
     Route: 064
  30. METHYLPHENIDATE. [Suspect]
     Active Substance: METHYLPHENIDATE
     Dosage: UNK
     Route: 065
  31. METHYLPHENIDATE. [Suspect]
     Active Substance: METHYLPHENIDATE
     Dosage: 36 MILLIGRAM
     Route: 064
  32. OMEPRAZOLE. [Suspect]
     Active Substance: OMEPRAZOLE
     Dosage: UNK
     Route: 065
  33. DULOXETINE. [Suspect]
     Active Substance: DULOXETINE
     Indication: PRODUCT USED FOR UNKNOWN INDICATION
     Dosage: UNK
     Route: 064
  34. CYCLOBENZAPRINE. [Suspect]
     Active Substance: CYCLOBENZAPRINE
     Indication: PRODUCT USED FOR UNKNOWN INDICATION
     Dosage: UNK
     Route: 064
  35. IRON SULPHATE [Suspect]
     Active Substance: FERROUS SULFATE ANHYDROUS
     Indication: PRODUCT USED FOR UNKNOWN INDICATION
     Dosage: UNK
     Route: 065
  36. DULOXETINE TEVA [Suspect]
     Active Substance: DULOXETINE HYDROCHLORIDE
     Dosage: UNK
     Route: 064
  37. DULOXETINE TEVA [Suspect]
     Active Substance: DULOXETINE HYDROCHLORIDE
     Dosage: 90 MILLIGRAM, OD
     Route: 064
  38. DULOXETINE TEVA [Suspect]
     Active Substance: DULOXETINE HYDROCHLORIDE
     Dosage: 90 MILLIGRAM, OD
     Route: 064
  39. DULOXETINE TEVA [Suspect]
     Active Substance: DULOXETINE HYDROCHLORIDE
     Dosage: 90 MILLIGRAM, UNK (DELAYED RELEASE)
     Route: 063
  40. DOCUSATE [Suspect]
     Active Substance: DOCUSATE
     Dosage: UNK
     Route: 063
  41. DULOXETINE TEVA [Suspect]
     Active Substance: DULOXETINE HYDROCHLORIDE
     Indication: PRODUCT USED FOR UNKNOWN INDICATION
     Dosage: 90 MILLIGRAM
     Route: 064
  42. DULOXETINE TEVA [Suspect]
     Active Substance: DULOXETINE HYDROCHLORIDE
     Dosage: 90 MILLIGRAM
     Route: 063
  43. URSODEOXYCHOLIC ACID [Suspect]
     Active Substance: URSODIOL
     Dosage: UNK
     Route: 064
  44. DOCUSATE SODIUM. [Suspect]
     Active Substance: DOCUSATE SODIUM
     Indication: PRODUCT USED FOR UNKNOWN INDICATION
     Dosage: UNK
     Route: 064
  45. DOCUSATE SODIUM. [Suspect]
     Active Substance: DOCUSATE SODIUM
     Dosage: UNK
     Route: 065
  46. DOMPERIDONE [Suspect]
     Active Substance: DOMPERIDONE
     Dosage: UNK
     Route: 065
  47. METHYLPHENIDATE. [Suspect]
     Active Substance: METHYLPHENIDATE
     Indication: PRODUCT USED FOR UNKNOWN INDICATION
     Dosage: UNK
     Route: 064
  48. METHYLPHENIDATE. [Suspect]
     Active Substance: METHYLPHENIDATE
     Dosage: 36 MILLIGRAM, OD
     Route: 064
  49. METHYLPHENIDATE. [Suspect]
     Active Substance: METHYLPHENIDATE
     Dosage: 36 MILLIGRAM, OD
     Route: 064
  50. METHYLPHENIDATE. [Suspect]
     Active Substance: METHYLPHENIDATE
     Dosage: 36 MILLIGRAM
     Route: 063
  51. OMEPRAZOLE. [Suspect]
     Active Substance: OMEPRAZOLE
     Dosage: UNK
     Route: 064
  52. INSULIN [Suspect]
     Active Substance: INSULIN NOS
     Dosage: UNK
     Route: 065
  53. METHYLPHENIDATE HYDROCHLORIDE. [Suspect]
     Active Substance: METHYLPHENIDATE HYDROCHLORIDE
     Indication: PRODUCT USED FOR UNKNOWN INDICATION
     Route: 065
  54. DOCUSATE SODIUM. [Suspect]
     Active Substance: DOCUSATE SODIUM
     Dosage: UNK
     Route: 065
  55. DULOXETINE TEVA [Suspect]
     Active Substance: DULOXETINE HYDROCHLORIDE
     Dosage: UNK
     Route: 064
  56. DULOXETINE TEVA [Suspect]
     Active Substance: DULOXETINE HYDROCHLORIDE
     Dosage: UNK
     Route: 065
  57. DULOXETINE TEVA [Suspect]
     Active Substance: DULOXETINE HYDROCHLORIDE
     Dosage: UNK
     Route: 064
  58. DULOXETINE TEVA [Suspect]
     Active Substance: DULOXETINE HYDROCHLORIDE
     Dosage: 90 MILLIGRAM
     Route: 064
  59. DULOXETINE TEVA [Suspect]
     Active Substance: DULOXETINE HYDROCHLORIDE
     Dosage: 90 MILLIGRAM
     Route: 063
  60. DULOXETINE TEVA [Suspect]
     Active Substance: DULOXETINE HYDROCHLORIDE
     Dosage: 90 MILLIGRAM
     Route: 063
  61. DOCUSATE SODIUM. [Suspect]
     Active Substance: DOCUSATE SODIUM
     Dosage: UNK
     Route: 064
  62. DULOXETINE HYDROCHLORIDE. [Suspect]
     Active Substance: DULOXETINE HYDROCHLORIDE
     Dosage: 36 MILLIGRAM, UNK
     Route: 064
  63. METHYLPHENIDATE. [Suspect]
     Active Substance: METHYLPHENIDATE
     Dosage: 36 MILLIGRAM, OD
     Route: 064
  64. METHYLPHENIDATE. [Suspect]
     Active Substance: METHYLPHENIDATE
     Dosage: 36 MILLIGRAM
     Route: 063
  65. OMEPRAZOLE. [Suspect]
     Active Substance: OMEPRAZOLE
     Indication: PRODUCT USED FOR UNKNOWN INDICATION
     Dosage: UNK
     Route: 064
  66. DULOXETINE. [Suspect]
     Active Substance: DULOXETINE
     Dosage: UNK
     Route: 064
  67. CYCLOBENZAPRINE. [Suspect]
     Active Substance: CYCLOBENZAPRINE
     Dosage: UNK
     Route: 065
  68. CYCLOBENZAPRINE. [Suspect]
     Active Substance: CYCLOBENZAPRINE
     Dosage: UNK
     Route: 065
  69. DULOXETINE TEVA [Suspect]
     Active Substance: DULOXETINE HYDROCHLORIDE
     Dosage: UNK
     Route: 064
  70. DULOXETINE TEVA [Suspect]
     Active Substance: DULOXETINE HYDROCHLORIDE
     Dosage: 90 MILLIGRAM, OD
     Route: 064
  71. DOCUSATE SODIUM. [Suspect]
     Active Substance: DOCUSATE SODIUM
     Indication: PRODUCT USED FOR UNKNOWN INDICATION
     Dosage: UNK (TEVA?DOCUSATE SODIUM)
     Route: 064
  72. DOCUSATE SODIUM. [Suspect]
     Active Substance: DOCUSATE SODIUM
     Dosage: UNK (TEVA?DOCUSATE SODIUM)
     Route: 064
  73. DOCUSATE [Suspect]
     Active Substance: DOCUSATE
     Indication: PRODUCT USED FOR UNKNOWN INDICATION
     Dosage: UNK
     Route: 065
  74. DOCUSATE [Suspect]
     Active Substance: DOCUSATE
     Dosage: 90 MILLIGRAM
     Route: 064
  75. DULOXETINE TEVA [Suspect]
     Active Substance: DULOXETINE HYDROCHLORIDE
     Dosage: 90 MILLIGRAM
     Route: 064
  76. DULOXETINE TEVA [Suspect]
     Active Substance: DULOXETINE HYDROCHLORIDE
     Dosage: 90 MILLIGRAM
     Route: 063
  77. URSODEOXYCHOLIC ACID [Suspect]
     Active Substance: URSODIOL
     Dosage: UNK
     Route: 064
  78. CYCLOBENZAPRINE. [Suspect]
     Active Substance: CYCLOBENZAPRINE
     Dosage: UNK
     Route: 065
  79. DOMPERIDONE [Suspect]
     Active Substance: DOMPERIDONE
     Dosage: 20 MILLIGRAM
     Route: 064
  80. LEVOTHYROXINE. [Suspect]
     Active Substance: LEVOTHYROXINE
     Dosage: UNK
     Route: 065
  81. METHYLPHENIDATE. [Suspect]
     Active Substance: METHYLPHENIDATE
     Dosage: 36 MILLIGRAM
     Route: 063
  82. METHYLPHENIDATE. [Suspect]
     Active Substance: METHYLPHENIDATE
     Dosage: UNK
     Route: 065
  83. DOMPERIDONE [Suspect]
     Active Substance: DOMPERIDONE
     Indication: PRODUCT USED FOR UNKNOWN INDICATION
     Dosage: UNK
     Route: 065
  84. DOMPERIDONE [Suspect]
     Active Substance: DOMPERIDONE
     Dosage: UNK
     Route: 064
  85. DULOXETINE TEVA [Suspect]
     Active Substance: DULOXETINE HYDROCHLORIDE
     Indication: PRODUCT USED FOR UNKNOWN INDICATION
     Dosage: UNK
     Route: 064
  86. DULOXETINE TEVA [Suspect]
     Active Substance: DULOXETINE HYDROCHLORIDE
     Dosage: 90 MILLIGRAM
     Route: 063
  87. DULOXETINE TEVA [Suspect]
     Active Substance: DULOXETINE HYDROCHLORIDE
     Dosage: 90 MILLIGRAM, OD
     Route: 064
  88. DULOXETINE TEVA [Suspect]
     Active Substance: DULOXETINE HYDROCHLORIDE
     Dosage: 90 MILLIGRAM, OD
     Route: 064
  89. DULOXETINE TEVA [Suspect]
     Active Substance: DULOXETINE HYDROCHLORIDE
     Dosage: UNK
     Route: 063
  90. DOCUSATE SODIUM. [Suspect]
     Active Substance: DOCUSATE SODIUM
     Dosage: UNK
     Route: 065
  91. LEVOTHYROXINE. [Suspect]
     Active Substance: LEVOTHYROXINE
     Dosage: UNK
     Route: 065
  92. METHYLPHENIDATE. [Suspect]
     Active Substance: METHYLPHENIDATE
     Dosage: UNK
     Route: 064
  93. METHYLPHENIDATE. [Suspect]
     Active Substance: METHYLPHENIDATE
     Dosage: UNK
     Route: 065
  94. METHYLPHENIDATE. [Suspect]
     Active Substance: METHYLPHENIDATE
     Dosage: 36 MILLIGRAM, OD
     Route: 064
  95. OMEPRAZOLE. [Suspect]
     Active Substance: OMEPRAZOLE
     Dosage: UNK
     Route: 065
  96. LEVOTHYROXINE. [Suspect]
     Active Substance: LEVOTHYROXINE
     Indication: PRODUCT USED FOR UNKNOWN INDICATION
     Dosage: UNK
     Route: 064
  97. IRON SULPHATE [Suspect]
     Active Substance: FERROUS SULFATE ANHYDROUS
     Dosage: UNK
     Route: 065
  98. DULOXETINE TEVA [Suspect]
     Active Substance: DULOXETINE HYDROCHLORIDE
     Dosage: 90 MILLIGRAM, OD
     Route: 064
  99. DULOXETINE TEVA [Suspect]
     Active Substance: DULOXETINE HYDROCHLORIDE
     Dosage: 90 MILLIGRAM, OD
     Route: 064
  100. DULOXETINE TEVA [Suspect]
     Active Substance: DULOXETINE HYDROCHLORIDE
     Dosage: UNK
     Route: 063
  101. DULOXETINE TEVA [Suspect]
     Active Substance: DULOXETINE HYDROCHLORIDE
     Dosage: 90 MILLIGRAM
     Route: 064
  102. URSODEOXYCHOLIC ACID [Suspect]
     Active Substance: URSODIOL
     Dosage: UNK (TABLET)
     Route: 064
  103. DOCUSATE SODIUM. [Suspect]
     Active Substance: DOCUSATE SODIUM
     Dosage: UNK
     Route: 064
  104. DOMPERIDONE [Suspect]
     Active Substance: DOMPERIDONE
     Indication: PRODUCT USED FOR UNKNOWN INDICATION
     Dosage: 20 MILLIGRAM
     Route: 064
  105. DOMPERIDONE [Suspect]
     Active Substance: DOMPERIDONE
     Dosage: UNK
     Route: 065
  106. LEVOTHYROXINE. [Suspect]
     Active Substance: LEVOTHYROXINE
     Dosage: UNK
     Route: 064
  107. INSULIN [Suspect]
     Active Substance: INSULIN NOS
     Indication: PRODUCT USED FOR UNKNOWN INDICATION
     Dosage: UNK
     Route: 064
  108. DULOXETINE TEVA [Suspect]
     Active Substance: DULOXETINE HYDROCHLORIDE
     Dosage: 90 MILLIGRAM, OD
     Route: 064
  109. DULOXETINE TEVA [Suspect]
     Active Substance: DULOXETINE HYDROCHLORIDE
     Indication: PRODUCT USED FOR UNKNOWN INDICATION
     Dosage: 90 MILLIGRAM, UNK (DELAYED RELEASE)
     Route: 064
  110. DOCUSATE [Suspect]
     Active Substance: DOCUSATE
     Dosage: 90 MILLIGRAM
     Route: 064
  111. DULOXETINE TEVA [Suspect]
     Active Substance: DULOXETINE HYDROCHLORIDE
     Dosage: UNK
     Route: 063
  112. URSODEOXYCHOLIC ACID [Suspect]
     Active Substance: URSODIOL
     Dosage: UNK
     Route: 064
  113. URSODEOXYCHOLIC ACID [Suspect]
     Active Substance: URSODIOL
     Dosage: UNK (TABLET)
     Route: 064
  114. CYCLOBENZAPRINE. [Suspect]
     Active Substance: CYCLOBENZAPRINE
     Indication: PRODUCT USED FOR UNKNOWN INDICATION
     Dosage: UNK
     Route: 064
  115. FERROUS SULFATE. [Suspect]
     Active Substance: FERROUS SULFATE
     Indication: PRODUCT USED FOR UNKNOWN INDICATION
     Dosage: UNK
     Route: 064
  116. FERROUS SULFATE. [Suspect]
     Active Substance: FERROUS SULFATE
     Dosage: UNK
     Route: 065
  117. FERROUS SULFATE. [Suspect]
     Active Substance: FERROUS SULFATE
     Dosage: UNK
     Route: 064
  118. FERROUS SULFATE. [Suspect]
     Active Substance: FERROUS SULFATE
     Dosage: UNK
     Route: 065
  119. INSULIN [Suspect]
     Active Substance: INSULIN NOS
     Indication: PRODUCT USED FOR UNKNOWN INDICATION
     Dosage: UNK
     Route: 064
  120. LEVOTHYROXINE. [Suspect]
     Active Substance: LEVOTHYROXINE
     Dosage: UNK
     Route: 065
  121. LEVOTHYROXINE. [Suspect]
     Active Substance: LEVOTHYROXINE
     Dosage: UNK
     Route: 064
  122. METHYLPHENIDATE. [Suspect]
     Active Substance: METHYLPHENIDATE
     Dosage: 36 MILLIGRAM
     Route: 063
  123. METHYLPHENIDATE. [Suspect]
     Active Substance: METHYLPHENIDATE
     Dosage: 36 MILLIGRAM
     Route: 064
  124. DULOXETINE. [Suspect]
     Active Substance: DULOXETINE
     Dosage: UNK
     Route: 064
  125. IRON SULPHATE [Suspect]
     Active Substance: FERROUS SULFATE ANHYDROUS
     Dosage: UNK
     Route: 064
  126. DULOXETINE TEVA [Suspect]
     Active Substance: DULOXETINE HYDROCHLORIDE
     Indication: PRODUCT USED FOR UNKNOWN INDICATION
     Dosage: 90 MILLIGRAM
     Route: 064
  127. DULOXETINE TEVA [Suspect]
     Active Substance: DULOXETINE HYDROCHLORIDE
     Dosage: 90 MILLIGRAM
     Route: 063
  128. DULOXETINE TEVA [Suspect]
     Active Substance: DULOXETINE HYDROCHLORIDE
     Dosage: 90 MILLIGRAM
     Route: 063
  129. DULOXETINE TEVA [Suspect]
     Active Substance: DULOXETINE HYDROCHLORIDE
     Dosage: UNK
     Route: 064
  130. DULOXETINE TEVA [Suspect]
     Active Substance: DULOXETINE HYDROCHLORIDE
     Dosage: UNK
     Route: 064
  131. DULOXETINE TEVA [Suspect]
     Active Substance: DULOXETINE HYDROCHLORIDE
     Dosage: 90 MILLIGRAM, OD
     Route: 064
  132. DOCUSATE [Suspect]
     Active Substance: DOCUSATE
     Dosage: 90 MILLIGRAM
     Route: 064
  133. DOCUSATE [Suspect]
     Active Substance: DOCUSATE
     Dosage: UNK
     Route: 063
  134. DULOXETINE TEVA [Suspect]
     Active Substance: DULOXETINE HYDROCHLORIDE
     Dosage: UNK
     Route: 063

REACTIONS (11)
  - Pulmonary malformation [Unknown]
  - Respiratory tract malformation [Unknown]
  - Foetal exposure during pregnancy [Unknown]
  - Maternal exposure during breast feeding [Unknown]
  - Exposure via breast milk [Unknown]
  - Congenital anomaly [Unknown]
  - Somnolence [Unknown]
  - Lung cyst [Unknown]
  - Pneumonia [Unknown]
  - Exposure during pregnancy [Unknown]
  - Pregnancy [Unknown]
